FAERS Safety Report 8490840-4 (Version None)
Quarter: 2012Q3

REPORT INFORMATION
  Report Type: 
  Country: None (occurrence: None)
  Receive Date: 20120706
  Receipt Date: 20120629
  Transmission Date: 20120928
  Serious: No
  Sender: FDA-Public Use
  Company Number: US-BIOGENIDEC-2012BI023169

PATIENT
  Age: 48 Year
  Sex: Female

DRUGS (1)
  1. AVONEX [Suspect]
     Indication: MULTIPLE SCLEROSIS
     Route: 030
     Dates: start: 20120618

REACTIONS (6)
  - UPPER RESPIRATORY TRACT CONGESTION [None]
  - CONTUSION [None]
  - PAIN [None]
  - HEADACHE [None]
  - CHEST DISCOMFORT [None]
  - NAUSEA [None]
